FAERS Safety Report 8816195 (Version 2)
Quarter: 2013Q1

REPORT INFORMATION
  Report Type: Spontaneous
  Country: US (occurrence: US)
  Receive Date: 20120929
  Receipt Date: 20130208
  Transmission Date: 20140127
  Serious: No
  Sender: FDA-Public Use
  Company Number: US-009507513-1209USA009739

PATIENT
  Sex: Male

DRUGS (4)
  1. VICTRELIS [Suspect]
     Indication: HEPATITIS C
     Dosage: 4 OF 200MG, TID
     Route: 048
     Dates: start: 201208
  2. VICTRELIS [Suspect]
     Dosage: 4 OF 200MG, TID
     Route: 048
     Dates: start: 201209
  3. PEGASYS [Suspect]
     Dosage: UNK
     Route: 048
     Dates: start: 201208
  4. RIBASPHERE [Suspect]
     Dosage: UNK
     Route: 048
     Dates: start: 201208

REACTIONS (8)
  - Abdominal pain [Not Recovered/Not Resolved]
  - Gingival bleeding [Not Recovered/Not Resolved]
  - Haemoptysis [Unknown]
  - Oral lichen planus [Unknown]
  - Nausea [Not Recovered/Not Resolved]
  - Diarrhoea [Not Recovered/Not Resolved]
  - Vomiting [Not Recovered/Not Resolved]
  - Dysgeusia [Not Recovered/Not Resolved]
